FAERS Safety Report 17497705 (Version 1)
Quarter: 2020Q1

REPORT INFORMATION
  Report Type: Spontaneous
  Country: DE (occurrence: DE)
  Receive Date: 20200304
  Receipt Date: 20200304
  Transmission Date: 20200409
  Serious: Yes (Other)
  Sender: FDA-Public Use
  Company Number: DE-PFIZER INC-2020090590

PATIENT
  Age: 33 Year
  Sex: Female
  Weight: 64 kg

DRUGS (1)
  1. CYTOTEC [Suspect]
     Active Substance: MISOPROSTOL
     Indication: LABOUR INDUCTION
     Dosage: UNK
     Route: 048
     Dates: start: 20181209, end: 20181210

REACTIONS (7)
  - Product use in unapproved indication [Unknown]
  - Vaginal haemorrhage [Unknown]
  - Premature separation of placenta [Recovered/Resolved with Sequelae]
  - Pain [Unknown]
  - Maternal exposure during pregnancy [Unknown]
  - Off label use [Unknown]
  - Premature labour [Recovered/Resolved with Sequelae]

NARRATIVE: CASE EVENT DATE: 20181209
